FAERS Safety Report 10441014 (Version 1)
Quarter: 2014Q3

REPORT INFORMATION
  Report Type: Spontaneous
  Country: US (occurrence: None)
  Receive Date: 20140905
  Receipt Date: 20140905
  Transmission Date: 20150326
  Serious: Yes (Disabling)
  Sender: FDA-Public Use
  Company Number: None

PATIENT
  Age: 43 Year
  Sex: Female
  Weight: 58.97 kg

DRUGS (1)
  1. CIPROFLOXACIN. [Suspect]
     Active Substance: CIPROFLOXACIN
     Indication: SMALL INTESTINAL BACTERIAL OVERGROWTH
     Route: 048
     Dates: start: 20140828, end: 20140901

REACTIONS (10)
  - Nausea [None]
  - Sleep disorder [None]
  - Dizziness [None]
  - Dysgeusia [None]
  - Constipation [None]
  - Muscular weakness [None]
  - Hypoaesthesia [None]
  - Arthralgia [None]
  - Paraesthesia [None]
  - Neuropathy peripheral [None]

NARRATIVE: CASE EVENT DATE: 20140904
